FAERS Safety Report 6471844-X (Version None)
Quarter: 2009Q4

REPORT INFORMATION
  Report Type: 
  Country: None (occurrence: None)
  Receive Date: 20091203
  Receipt Date: 20080519
  Transmission Date: 20100525
  Serious: Yes (Other)
  Sender: FDA-Public Use
  Company Number: US-ELI_LILLY_AND_COMPANY-US200803000681

PATIENT
  Age: 61 Year
  Sex: Male
  Weight: 96.599 kg

DRUGS (15)
  1. CIALIS [Suspect]
     Dosage: 20 MG, AS NEEDED
     Dates: start: 20060710, end: 20080301
  2. NORVASC [Concomitant]
     Dosage: 5 MG, DAILY (1/D)
  3. FLOMAX [Concomitant]
     Dosage: 0.4 MG, EACH EVENING
  4. ADVICOR [Concomitant]
     Dosage: 20 MG, 2/D
  5. AVALIDE [Concomitant]
  6. LANTUS [Concomitant]
     Dosage: 25 U, EACH MORNING
  7. LANTUS [Concomitant]
     Dosage: 30 U, EACH EVENING
  8. LANTUS [Concomitant]
     Dosage: 30 U, 2/D
  9. HUMULIN R [Concomitant]
     Dosage: 20 U, 4/D
  10. HUMALOG [Concomitant]
     Dosage: 30 U, AS NEEDED
  11. HUMALOG [Concomitant]
     Dosage: 30 U, DAILY (1/D)
  12. TRENTAL [Concomitant]
     Dosage: 400 MG, 3/D
  13. VIAGRA [Concomitant]
     Dosage: 100 MG, AS NEEDED
  14. OMACOR [Concomitant]
     Dosage: 1 G, UNK
  15. ANDROGEL [Concomitant]
     Dosage: 5 G, DAILY (1/D)

REACTIONS (5)
  - ANGIOPATHY [None]
  - INTERMITTENT CLAUDICATION [None]
  - PAIN IN EXTREMITY [None]
  - PHOTOPSIA [None]
  - VISUAL FIELD DEFECT [None]
